FAERS Safety Report 24566210 (Version 2)
Quarter: 2024Q4

REPORT INFORMATION
  Report Type: Spontaneous
  Country: RU (occurrence: RU)
  Receive Date: 20241030
  Receipt Date: 20241104
  Transmission Date: 20250115
  Serious: Yes (Other)
  Sender: NOVARTIS
  Company Number: RU-002147023-NVSC2024RU210292

PATIENT

DRUGS (1)
  1. TRAMETINIB [Suspect]
     Active Substance: TRAMETINIB
     Indication: Brain stem glioma
     Dosage: UNK, QD (0.032 MG/KG/DAY OR 0.025 MG/KG/DAY)
     Route: 048

REACTIONS (3)
  - Skin toxicity [Unknown]
  - Rash [Unknown]
  - Paronychia [Unknown]
